FAERS Safety Report 8991101 (Version 2)
Quarter: 2013Q1

REPORT INFORMATION
  Report Type: Spontaneous
  Country: US (occurrence: None)
  Receive Date: 20121220
  Receipt Date: 20130123
  Transmission Date: 20140127
  Serious: Yes (Other)
  Sender: FDA-Public Use
  Company Number: JPI-P-027128

PATIENT
  Age: 21 Year
  Sex: Male
  Weight: 86.18 kg

DRUGS (5)
  1. XYREM (500 MILLIGRAM/MILLILITERS, SOLUTION)(SODIUM OXYBATE) [Suspect]
     Indication: NARCOLEPSY
     Dosage: 6 GM (3 GM, 2 IN 1 D), ORAL
     Route: 048
     Dates: start: 20121120
  2. XYREM (500 MILLIGRAM/MILLILITERS, SOLUTION)(SODIUM OXYBATE) [Suspect]
     Indication: SOMNOLENCE
     Dosage: 6 GM (3 GM, 2 IN 1 D), ORAL
     Route: 048
     Dates: start: 20121120
  3. AMPHETAMINE, DEXTROAMPHETAMINE MIXED SALTS [Concomitant]
  4. HYDROCODONE BITARTRATE AND ACETAMINOPHEN [Concomitant]
  5. TRAMADOL [Concomitant]

REACTIONS (6)
  - Gait disturbance [None]
  - Fall [None]
  - Hand fracture [None]
  - Joint injury [None]
  - Limb injury [None]
  - Procedural pain [None]
